FAERS Safety Report 11062306 (Version 1)
Quarter: 2015Q2

REPORT INFORMATION
  Report Type: Other
  Country: GB (occurrence: GB)
  Receive Date: 20150424
  Receipt Date: 20150424
  Transmission Date: 20150821
  Serious: Yes (Hospitalization, Disabling, Other)
  Sender: FDA-Public Use
  Company Number: GB-APOTEX-2015AP008185

PATIENT
  Age: 61 Year
  Sex: Female
  Weight: 50.8 kg

DRUGS (2)
  1. SYMBICORT [Concomitant]
     Active Substance: BUDESONIDE\FORMOTEROL FUMARATE DIHYDRATE
     Indication: PRODUCT USED FOR UNKNOWN INDICATION
     Route: 050
  2. LATANOPROST. [Suspect]
     Active Substance: LATANOPROST
     Indication: GLAUCOMA
     Dosage: 2 GTT, UNK
     Route: 047
     Dates: start: 20140905, end: 20141118

REACTIONS (3)
  - Cough [Unknown]
  - Wheezing [Unknown]
  - Asthma late onset [Recovered/Resolved with Sequelae]

NARRATIVE: CASE EVENT DATE: 20140905
